FAERS Safety Report 16193453 (Version 1)
Quarter: 2019Q2

REPORT INFORMATION
  Report Type: Spontaneous
  Country: US (occurrence: US)
  Receive Date: 20190413
  Receipt Date: 20190413
  Transmission Date: 20190711
  Serious: No
  Sender: FDA-Public Use
  Company Number: US-TEVA-2019-US-1028892

PATIENT
  Sex: Male

DRUGS (2)
  1. ZOLPIDEM TARTRATE ER TABLET [Suspect]
     Active Substance: ZOLPIDEM TARTRATE
     Route: 065
  2. ZOLPIDEM TARTRATE ER TABLET [Suspect]
     Active Substance: ZOLPIDEM TARTRATE
     Indication: SLEEP DISORDER
     Route: 065
     Dates: start: 20190315

REACTIONS (1)
  - Drug ineffective [Unknown]

NARRATIVE: CASE EVENT DATE: 20190315
